FAERS Safety Report 4433769-0 (Version None)
Quarter: 2004Q3

REPORT INFORMATION
  Report Type: 
  Country: None (occurrence: None)
  Receive Date: 20040825
  Receipt Date: 20040813
  Transmission Date: 20050211
  Serious: No
  Sender: FDA-Public Use
  Company Number: USA040771826

PATIENT
  Age: 71 Year
  Sex: Female

DRUGS (4)
  1. FORTEO [Suspect]
     Indication: OSTEOPOROSIS
     Dates: start: 20040624
  2. DARVOCET-N 100 [Concomitant]
  3. SYNTHROUD (LEVOTHYROXINE SODIUM) [Concomitant]
  4. ARAVA [Concomitant]

REACTIONS (4)
  - DERMATITIS EXFOLIATIVE [None]
  - RASH GENERALISED [None]
  - RASH MACULO-PAPULAR [None]
  - RASH SCARLATINIFORM [None]
